FAERS Safety Report 7220624-6 (Version None)
Quarter: 2011Q1

REPORT INFORMATION
  Report Type: 
  Country: None (occurrence: None)
  Receive Date: 20110111
  Receipt Date: 20101228
  Transmission Date: 20110831
  Serious: Yes (Hospitalization)
  Sender: FDA-Public Use
  Company Number: JP-PFIZER INC-2010140796

PATIENT
  Age: 69 Year
  Sex: Female
  Weight: 43 kg

DRUGS (16)
  1. CAMPTO [Suspect]
     Indication: COLON CANCER
     Dosage: 180 MG/M2, UNK
     Route: 041
     Dates: start: 20100811, end: 20101215
  2. 5-FU [Suspect]
     Dosage: 2400 MG/M2, UNK
     Route: 041
     Dates: start: 20100811, end: 20101215
  3. MAGNESIUM OXIDE [Concomitant]
     Indication: CONSTIPATION
     Dosage: 1 G, UNK
     Route: 048
  4. PYDOXAL [Concomitant]
     Indication: NEUROPATHY PERIPHERAL
     Dosage: 10 MG, 3X/DAY
     Route: 048
  5. DAI-KENCHU-TO [Concomitant]
     Indication: CONSTIPATION
     Dosage: 2.5 G, 3X/DAY
     Route: 048
  6. SELBEX [Concomitant]
     Indication: DUODENAL ULCER
     Dosage: 50 MG, 3X/DAY
     Route: 048
  7. TEPRENONE [Concomitant]
     Dosage: 50 MG, UNK
     Route: 048
     Dates: start: 20101023
  8. VOLTAREN [Concomitant]
     Indication: BACK PAIN
     Dosage: 25 MG, 3X/DAY
     Route: 048
  9. KETOPROFEN [Concomitant]
     Indication: BACK PAIN
     Dosage: UNK, 1X/DAY
  10. LOXOPROFEN [Concomitant]
     Dosage: 60 MG, UNK
     Route: 048
     Dates: start: 20101023
  11. 5-FU [Suspect]
     Indication: COLON CANCER
     Dosage: 400 MG/M2
     Route: 040
     Dates: start: 20100811, end: 20101215
  12. AVASTIN [Suspect]
     Indication: COLON CANCER
     Dosage: 5 MG/KG, UNK
     Route: 041
     Dates: start: 20100811, end: 20101215
  13. TAKEPRON [Concomitant]
     Indication: DUODENAL ULCER
     Dosage: 30 MG, UNK
     Route: 048
  14. GABAPENTIN [Concomitant]
     Indication: BACK PAIN
     Dosage: 200 MG, UNK
     Route: 048
  15. HACHIAZULE [Concomitant]
     Indication: STOMATITIS
     Dosage: UNK
  16. LEUCOVORIN CALCIUM [Suspect]
     Indication: COLON CANCER
     Dosage: 200 MG/M2, UNK
     Route: 041
     Dates: start: 20100811, end: 20101215

REACTIONS (3)
  - SEPSIS [None]
  - URINARY TRACT INFECTION [None]
  - DIARRHOEA [None]
